FAERS Safety Report 9352717 (Version 2)
Quarter: 2013Q3

REPORT INFORMATION
  Report Type: Spontaneous
  Country: US (occurrence: US)
  Receive Date: 20130618
  Receipt Date: 20130819
  Transmission Date: 20140515
  Serious: Yes (Other)
  Sender: FDA-Public Use
  Company Number: US-009507513-1306USA007154

PATIENT
  Sex: 0

DRUGS (1)
  1. HEXADROL [Suspect]

REACTIONS (1)
  - Diabetic ketoacidosis [Unknown]
